FAERS Safety Report 7474714-3 (Version None)
Quarter: 2011Q2

REPORT INFORMATION
  Report Type: 
  Country: None (occurrence: None)
  Receive Date: 20110512
  Receipt Date: 20110502
  Transmission Date: 20111010
  Serious: Yes (Death, Hospitalization, Other)
  Sender: FDA-Public Use
  Company Number: US-CELGENEUS-163-21880-11030816

PATIENT
  Sex: Male
  Weight: 62.652 kg

DRUGS (16)
  1. REVLIMID [Suspect]
     Indication: MULTIPLE MYELOMA
     Dosage: 25 MILLIGRAM
     Route: 048
     Dates: start: 20080801, end: 20090901
  2. VITAMIN D [Concomitant]
     Route: 065
  3. REVLIMID [Suspect]
     Dosage: 5 MILLIGRAM
     Route: 048
     Dates: start: 20100701, end: 20101201
  4. REVLIMID [Suspect]
     Dosage: 10 MILLIGRAM
     Route: 048
     Dates: start: 20110201, end: 20110201
  5. INSULIN [Concomitant]
     Route: 065
     Dates: end: 20110201
  6. LASIX [Concomitant]
     Dosage: 40 MILLIGRAM
     Route: 065
  7. COUMADIN [Concomitant]
     Dosage: 2 MILLIGRAM
     Route: 065
  8. K [Concomitant]
     Dosage: 20 MILLIEQUIVALENTS
     Route: 065
  9. VYTORIN [Concomitant]
     Route: 065
  10. VITAMIN B-12 [Concomitant]
     Route: 065
  11. COREG [Concomitant]
     Dosage: 6.5 MILLIGRAM
     Route: 065
  12. DILAUDID [Concomitant]
     Dosage: 3 TABLET
     Route: 048
  13. DIGOXIN [Concomitant]
     Dosage: .125 MILLIGRAM
     Route: 065
  14. DILAUDID [Concomitant]
     Indication: BACK PAIN
  15. PHENERGAN HCL [Concomitant]
     Indication: NAUSEA
     Dosage: 25 MILLIGRAM
     Route: 065
  16. COUMADIN [Concomitant]
     Dosage: 4 MILLIGRAM
     Route: 065

REACTIONS (8)
  - BONE MARROW FAILURE [None]
  - ASTHENIA [None]
  - OSTEOMYELITIS [None]
  - PYREXIA [None]
  - JAW FRACTURE [None]
  - RIB FRACTURE [None]
  - FALL [None]
  - RESPIRATORY FAILURE [None]
